FAERS Safety Report 6760571-7 (Version None)
Quarter: 2010Q2

REPORT INFORMATION
  Report Type: 
  Country: None (occurrence: None)
  Receive Date: 20100608
  Receipt Date: 20100526
  Transmission Date: 20101027
  Serious: Yes (Other)
  Sender: FDA-Public Use
  Company Number: DE-PFIZER INC-2010065887

PATIENT
  Sex: Female

DRUGS (1)
  1. SYNAREL [Suspect]
     Dosage: UNK

REACTIONS (1)
  - OVARIAN CYST [None]
